FAERS Safety Report 19905434 (Version 1)
Quarter: 2021Q4

REPORT INFORMATION
  Report Type: Spontaneous
  Country: US (occurrence: US)
  Receive Date: 20211001
  Receipt Date: 20211001
  Transmission Date: 20220303
  Serious: Yes (Hospitalization)
  Sender: FDA-Public Use
  Company Number: US-PFIZER INC-2021894502

PATIENT
  Age: 77 Year
  Sex: Female

DRUGS (4)
  1. IBRANCE [Suspect]
     Active Substance: PALBOCICLIB
     Dosage: 125 MG
     Dates: start: 20210622
  2. IBRANCE [Suspect]
     Active Substance: PALBOCICLIB
     Dosage: 125 MG
     Dates: start: 20210623
  3. IBRANCE [Suspect]
     Active Substance: PALBOCICLIB
     Dosage: 125 MG
     Dates: start: 20210624
  4. HYDROCODONE BITARTRATE AND ACETAMINOPHEN [Suspect]
     Active Substance: ACETAMINOPHEN\HYDROCODONE BITARTRATE
     Dosage: UNK

REACTIONS (15)
  - Chest injury [Unknown]
  - Fall [Unknown]
  - Alopecia [Unknown]
  - Asthenia [Unknown]
  - Abdominal discomfort [Unknown]
  - Ear pain [Unknown]
  - Pain in jaw [Unknown]
  - Product dose omission in error [Unknown]
  - Abdominal distension [Unknown]
  - Peripheral swelling [Unknown]
  - Dyspepsia [Unknown]
  - Flatulence [Not Recovered/Not Resolved]
  - Decreased appetite [Unknown]
  - Constipation [Unknown]
  - Learning disability [Unknown]

NARRATIVE: CASE EVENT DATE: 20210101
